FAERS Safety Report 21610063 (Version 1)
Quarter: 2022Q4

REPORT INFORMATION
  Report Type: Report from Study
  Country: US (occurrence: US)
  Receive Date: 20221117
  Receipt Date: 20221117
  Transmission Date: 20230113
  Serious: No
  Sender: FDA-Public Use
  Company Number: US-ABBVIE-4157171

PATIENT
  Sex: Female

DRUGS (1)
  1. HUMIRA [Suspect]
     Active Substance: ADALIMUMAB
     Indication: Psoriasis
     Dosage: CF?FORM STRENGTH: 40
     Route: 058
     Dates: end: 202209

REACTIONS (2)
  - Therapeutic product effect delayed [Not Recovered/Not Resolved]
  - Gastric disorder [Not Recovered/Not Resolved]
